FAERS Safety Report 8521230-3 (Version None)
Quarter: 2012Q3

REPORT INFORMATION
  Report Type: 
  Country: None (occurrence: None)
  Receive Date: 20120719
  Receipt Date: 20120713
  Transmission Date: 20120928
  Serious: Yes (Other)
  Sender: FDA-Public Use
  Company Number: US-BAYER-2012-043054

PATIENT
  Sex: Female

DRUGS (2)
  1. MIRENA [Suspect]
     Dosage: 20 MCG/24HR, CONT
     Route: 015
     Dates: start: 20100101, end: 20120505
  2. MIRENA [Suspect]
     Indication: CONTRACEPTION
     Dosage: 20 MCG/24HR, CONT
     Route: 015
     Dates: start: 20070101, end: 20090101

REACTIONS (15)
  - WEIGHT INCREASED [None]
  - FATIGUE [None]
  - POSTPARTUM DEPRESSION [None]
  - PANIC ATTACK [None]
  - ANXIETY [None]
  - TREMOR [None]
  - ALOPECIA [None]
  - HEADACHE [None]
  - MAJOR DEPRESSION [None]
  - FEELING OF BODY TEMPERATURE CHANGE [None]
  - ABNORMAL BEHAVIOUR [None]
  - SUICIDAL IDEATION [None]
  - DEVICE DISLOCATION [None]
  - VISUAL ACUITY REDUCED [None]
  - ARTHRALGIA [None]
